FAERS Safety Report 22297926 (Version 1)
Quarter: 2023Q2

REPORT INFORMATION
  Report Type: Spontaneous
  Country: IE (occurrence: IE)
  Receive Date: 20230509
  Receipt Date: 20230509
  Transmission Date: 20230722
  Serious: Yes (Other)
  Sender: FDA-Public Use
  Company Number: IE-HPRA-2023-103274

PATIENT
  Age: 64 Year
  Sex: Female

DRUGS (4)
  1. MORPHINE [Suspect]
     Active Substance: MORPHINE
     Indication: Product used for unknown indication
     Dosage: GIVEN DIRECTLY INTO WOUND; SINGLE USE
     Route: 065
     Dates: start: 20220719, end: 20220719
  2. TORADOL [Suspect]
     Active Substance: KETOROLAC TROMETHAMINE
     Indication: Product used for unknown indication
     Dosage: GIVEN DIRECTLY INTO WOUND; SINGLE USE
     Route: 065
     Dates: start: 20220719, end: 20220719
  3. NAROPIN [Suspect]
     Active Substance: ROPIVACAINE HYDROCHLORIDE
     Indication: Product used for unknown indication
     Dosage: GIVEN DIRECTLY INTO WOUND; SINGLE USE
     Route: 065
     Dates: start: 20220719, end: 20220719
  4. EPINEPHRINE [Suspect]
     Active Substance: EPINEPHRINE
     Indication: Product used for unknown indication
     Dosage: GIVEN DIRECTLY INTO WOUND; SINGLE USE
     Route: 065
     Dates: start: 20220719, end: 20220719

REACTIONS (4)
  - Generalised tonic-clonic seizure [Recovering/Resolving]
  - Ventricular tachycardia [Recovering/Resolving]
  - Blood pressure decreased [Recovering/Resolving]
  - Oxygen saturation decreased [Recovering/Resolving]

NARRATIVE: CASE EVENT DATE: 20220719
